FAERS Safety Report 24232715 (Version 2)
Quarter: 2024Q3

REPORT INFORMATION
  Report Type: Spontaneous
  Country: US (occurrence: US)
  Receive Date: 20240821
  Receipt Date: 20240923
  Transmission Date: 20241017
  Serious: No
  Sender: PFIZER
  Company Number: US-PFIZER INC-PV202300169467

PATIENT
  Age: 77 Year
  Sex: Female

DRUGS (1)
  1. SOMAVERT [Suspect]
     Active Substance: PEGVISOMANT
     Dosage: SOMAVERT 30MG 4 DAYS PER WEEK

REACTIONS (3)
  - Off label use [Unknown]
  - Needle issue [Unknown]
  - Device defective [Unknown]
